FAERS Safety Report 21904373 (Version 2)
Quarter: 2023Q2

REPORT INFORMATION
  Report Type: Report from Study
  Country: US (occurrence: US)
  Receive Date: 20230124
  Receipt Date: 20230414
  Transmission Date: 20230722
  Serious: Yes (Other)
  Sender: FDA-Public Use
  Company Number: US-TAKEDA-2021TUS031960

PATIENT
  Age: 67 Year
  Sex: Female
  Weight: 83.9 kg

DRUGS (19)
  1. HUMAN IMMUNOGLOBULIN G [Suspect]
     Active Substance: HUMAN IMMUNOGLOBULIN G
     Indication: Immunodeficiency
     Dosage: 10 GRAM, 2/WEEK
     Route: 058
     Dates: start: 20111012
  2. HUMAN IMMUNOGLOBULIN G [Suspect]
     Active Substance: HUMAN IMMUNOGLOBULIN G
     Indication: Primary immunodeficiency syndrome
  3. HUMAN IMMUNOGLOBULIN G [Suspect]
     Active Substance: HUMAN IMMUNOGLOBULIN G
     Indication: Seasonal affective disorder
  4. DIPHENHYDRAMINE [Concomitant]
     Active Substance: DIPHENHYDRAMINE
  5. EPINEPHRINE [Concomitant]
     Active Substance: EPINEPHRINE
  6. VITAMIN D3 [Concomitant]
     Active Substance: CHOLECALCIFEROL
  7. LIDOCAINE\PRILOCAINE [Concomitant]
     Active Substance: LIDOCAINE\PRILOCAINE
  8. ARMOUR THYROID [Concomitant]
     Active Substance: THYROID, PORCINE
  9. IRBESARTAN [Concomitant]
     Active Substance: IRBESARTAN
  10. ACETAMINOPHEN [Concomitant]
     Active Substance: ACETAMINOPHEN
  11. OXYGEN [Concomitant]
     Active Substance: OXYGEN
  12. IPRATROPIUM [Concomitant]
     Active Substance: IPRATROPIUM
  13. ALBUTEROL [Concomitant]
     Active Substance: ALBUTEROL
  14. MECLIZINE HYDROCHLORIDE [Concomitant]
     Active Substance: MECLIZINE HYDROCHLORIDE
  15. VALTREX [Concomitant]
     Active Substance: VALACYCLOVIR HYDROCHLORIDE
  16. PROAIR HFA [Concomitant]
     Active Substance: ALBUTEROL SULFATE
  17. MELATONIN [Concomitant]
     Active Substance: MELATONIN
  18. VITAMIN B [Concomitant]
     Active Substance: VITAMIN B
  19. ALBUTEROL\IPRATROPIUM [Concomitant]
     Active Substance: ALBUTEROL\IPRATROPIUM

REACTIONS (9)
  - Endometrial cancer [Unknown]
  - Nasopharyngitis [Recovering/Resolving]
  - Hand-foot-and-mouth disease [Recovered/Resolved]
  - COVID-19 [Unknown]
  - Respiratory tract infection [Unknown]
  - Headache [Unknown]
  - Nasal congestion [Unknown]
  - Lymphadenopathy [Unknown]
  - Oropharyngeal pain [Unknown]

NARRATIVE: CASE EVENT DATE: 20220110
